FAERS Safety Report 8250678-X (Version None)
Quarter: 2012Q2

REPORT INFORMATION
  Report Type: 
  Country: None (occurrence: None)
  Receive Date: 20120402
  Receipt Date: 20120327
  Transmission Date: 20120825
  Serious: Yes (Other)
  Sender: FDA-Public Use
  Company Number: JP-PFIZER INC-2012077708

PATIENT
  Sex: Male

DRUGS (5)
  1. VOLTAREN - SLOW RELEASE ^NOVARTIS^ [Concomitant]
     Dosage: UNK
  2. ASPIRIN [Concomitant]
     Dosage: UNK
  3. OMEPRAZOLE [Concomitant]
     Dosage: UNK
  4. LYRICA [Suspect]
     Dosage: UNK, INCREASED
  5. LYRICA [Suspect]
     Indication: LUMBAR SPINAL STENOSIS
     Dosage: 75 MG, 4X/DAY
     Route: 048
     Dates: start: 20110601

REACTIONS (5)
  - CERVICOBRACHIAL SYNDROME [None]
  - VISUAL ACUITY REDUCED [None]
  - DIPLOPIA [None]
  - ASTIGMATISM [None]
  - VISION BLURRED [None]
